FAERS Safety Report 7428946-0 (Version None)
Quarter: 2011Q2

REPORT INFORMATION
  Report Type: 
  Country: None (occurrence: None)
  Receive Date: 20110413
  Receipt Date: 20110331
  Transmission Date: 20111010
  Serious: Yes (Death)
  Sender: FDA-Public Use
  Company Number: 2011-1022

PATIENT
  Age: 63 Year
  Sex: Female

DRUGS (1)
  1. APO-GO AMPOULES (APO-GO) (APOMORPHINE HYDROCHLORIDE) (APOMORPHINE HYDR [Suspect]
     Indication: PRODUCT USED FOR UNKNOWN INDICATION
     Dosage: FROM 7AM TO 10PM/DAY AT 2MG/HOUR (CONTINUOUS INFUSION),SUBCUTANEOUS
     Route: 058
     Dates: start: 20090310, end: 20100303

REACTIONS (1)
  - DEATH [None]
